FAERS Safety Report 7749394-X (Version None)
Quarter: 2011Q3

REPORT INFORMATION
  Report Type: 
  Country: None (occurrence: None)
  Receive Date: 20110914
  Receipt Date: 20110912
  Transmission Date: 20111222
  Serious: Yes (Other)
  Sender: FDA-Public Use
  Company Number: US-PFIZER INC-2011118714

PATIENT
  Sex: Female

DRUGS (8)
  1. THEO-24 [Concomitant]
     Indication: CHRONIC OBSTRUCTIVE PULMONARY DISEASE
     Dosage: UNK
     Dates: start: 19990101
  2. HYDROXYZINE [Concomitant]
     Indication: RASH
     Dosage: UNK
     Dates: start: 20070101, end: 20110101
  3. CHANTIX [Suspect]
     Indication: SMOKING CESSATION THERAPY
     Dosage: UNK
     Dates: start: 20070101, end: 20071001
  4. CHANTIX [Suspect]
     Dosage: UNK
     Dates: start: 20080501, end: 20090601
  5. ALBUTEROL [Concomitant]
     Indication: CHRONIC OBSTRUCTIVE PULMONARY DISEASE
     Dosage: UNK
     Dates: start: 20000101
  6. PREDNISONE [Concomitant]
     Indication: CHRONIC OBSTRUCTIVE PULMONARY DISEASE
     Dosage: UNK
     Dates: start: 20000101, end: 20110101
  7. LIPITOR [Concomitant]
     Indication: BLOOD CHOLESTEROL INCREASED
     Dosage: UNK
     Dates: start: 20050101
  8. ADVAIR DISKUS 100/50 [Concomitant]
     Indication: CHRONIC OBSTRUCTIVE PULMONARY DISEASE
     Dosage: UNK
     Dates: start: 20010101

REACTIONS (7)
  - COGNITIVE DISORDER [None]
  - DEPRESSION [None]
  - ANXIETY [None]
  - PANIC ATTACK [None]
  - ANGER [None]
  - AGGRESSION [None]
  - SUICIDAL IDEATION [None]
